FAERS Safety Report 17888527 (Version 1)
Quarter: 2020Q2

REPORT INFORMATION
  Report Type: Spontaneous
  Country: US (occurrence: US)
  Receive Date: 20200612
  Receipt Date: 20200612
  Transmission Date: 20200714
  Serious: No
  Sender: FDA-Public Use
  Company Number: US-ASTRAZENECA-2020SE69654

PATIENT
  Age: 24501 Day
  Sex: Female
  Weight: 64.4 kg

DRUGS (1)
  1. PULMICORT FLEXHALER [Suspect]
     Active Substance: BUDESONIDE
     Indication: DYSPNOEA
     Route: 055
     Dates: start: 20200523

REACTIONS (5)
  - Intentional device misuse [Unknown]
  - Product taste abnormal [Unknown]
  - Product use issue [Unknown]
  - Asthma [Unknown]
  - Drug delivery system issue [Unknown]

NARRATIVE: CASE EVENT DATE: 20200523
